FAERS Safety Report 6313083-9 (Version None)
Quarter: 2009Q3

REPORT INFORMATION
  Report Type: 
  Country: None (occurrence: None)
  Receive Date: 20090818
  Receipt Date: 20090804
  Transmission Date: 20100115
  Serious: Yes (Hospitalization, Other)
  Sender: FDA-Public Use
  Company Number: PHEH2009US08742

PATIENT
  Sex: Male
  Weight: 76.281 kg

DRUGS (6)
  1. EXJADE [Suspect]
     Indication: HAEMOCHROMATOSIS
     Dosage: 1500 MG/DAY
     Route: 048
     Dates: start: 20090701, end: 20090801
  2. METOPROLOL TARTRATE [Concomitant]
     Dosage: 50 MG, QD
     Route: 048
  3. LOVAZA [Concomitant]
     Dosage: 1 UNK, BID
     Route: 048
  4. MULTI-VITAMINS [Concomitant]
     Dosage: 1 UNK, QD
     Route: 048
  5. LISINOPRIL [Concomitant]
     Dosage: UNK
     Dates: end: 20090802
  6. COMPAZINE [Concomitant]
     Dosage: 10 MG, Q4-6H PRN
     Route: 048

REACTIONS (29)
  - ABDOMINAL DISTENSION [None]
  - ABDOMINAL PAIN [None]
  - ACUTE PRERENAL FAILURE [None]
  - BLOOD AMYLASE INCREASED [None]
  - BLOOD BICARBONATE DECREASED [None]
  - BLOOD CALCIUM DECREASED [None]
  - BLOOD CHLORIDE INCREASED [None]
  - BLOOD GLUCOSE INCREASED [None]
  - DEHYDRATION [None]
  - DIARRHOEA [None]
  - ELECTROLYTE IMBALANCE [None]
  - FATIGUE [None]
  - GASTROOESOPHAGEAL REFLUX DISEASE [None]
  - HAEMATOCRIT DECREASED [None]
  - HYPOTENSION [None]
  - LIPASE INCREASED [None]
  - LYMPHOCYTE COUNT DECREASED [None]
  - MALAISE [None]
  - MEAN PLATELET VOLUME DECREASED [None]
  - METABOLIC ACIDOSIS [None]
  - MONOCYTE PERCENTAGE INCREASED [None]
  - NAUSEA [None]
  - PANCREATITIS [None]
  - PCO2 DECREASED [None]
  - PLATELET COUNT DECREASED [None]
  - RED CELL DISTRIBUTION WIDTH DECREASED [None]
  - RENAL FAILURE ACUTE [None]
  - SERUM FERRITIN DECREASED [None]
  - VOMITING [None]
